FAERS Safety Report 6709275-7 (Version None)
Quarter: 2010Q2

REPORT INFORMATION
  Report Type: 
  Country: None (occurrence: None)
  Receive Date: 20100429
  Receipt Date: 20100420
  Transmission Date: 20101027
  Serious: Yes (Hospitalization)
  Sender: FDA-Public Use
  Company Number: TPA2010A02324

PATIENT
  Age: 85 Year
  Sex: Male

DRUGS (2)
  1. ADENURIC (FEBUXOSTAT) [Suspect]
     Indication: GOUT
     Dosage: 80 MG, 1 IN 1 D, ORAL
     Route: 048
     Dates: start: 20100401
  2. COLCHIMAX (COLCHICINE, TIEMONIUM METHYLSULPHATE, PAPAVER SOMNIFERUM PO [Suspect]
     Indication: DRUG USE FOR UNKNOWN INDICATION
     Dates: start: 20100401

REACTIONS (3)
  - DIARRHOEA [None]
  - FALL [None]
  - MALAISE [None]
